FAERS Safety Report 6570479-8 (Version None)
Quarter: 2010Q1

REPORT INFORMATION
  Report Type: 
  Country: None (occurrence: None)
  Receive Date: 20100204
  Receipt Date: 20090902
  Transmission Date: 20100710
  Serious: Yes (Hospitalization)
  Sender: FDA-Public Use
  Company Number: A0805688A

PATIENT
  Age: 72 Year
  Sex: Female
  Weight: 88 kg

DRUGS (2)
  1. ARIXTRA [Suspect]
     Route: 058
     Dates: start: 20090821, end: 20090828
  2. UNKNOWN [Concomitant]

REACTIONS (2)
  - INCISION SITE HAEMORRHAGE [None]
  - SURGERY [None]
